FAERS Safety Report 8990175 (Version 1)
Quarter: 2012Q4

REPORT INFORMATION
  Report Type: 
  Country: DE (occurrence: DE)
  Receive Date: 20121228
  Receipt Date: 20121228
  Transmission Date: 20130627
  Serious: Yes (Other)
  Sender: FDA-Public Use
  Company Number: DE-TEVA-376369GER

PATIENT
  Age: 0 Year
  Sex: Male
  Weight: 2.4 kg

DRUGS (1)
  1. METOPROLOL [Suspect]
     Route: 064

REACTIONS (3)
  - Neonatal respiratory distress syndrome [Recovered/Resolved]
  - Hypoglycaemia neonatal [Recovered/Resolved]
  - Small for dates baby [Recovered/Resolved]
